FAERS Safety Report 7549345-7 (Version None)
Quarter: 2011Q2

REPORT INFORMATION
  Report Type: 
  Country: None (occurrence: None)
  Receive Date: 20110615
  Receipt Date: 20040123
  Transmission Date: 20111010
  Serious: Yes (Death)
  Sender: FDA-Public Use
  Company Number: PHHO2004PH10848

PATIENT

DRUGS (3)
  1. LESCOL [Suspect]
  2. DIOVAN [Suspect]
  3. DIOVAN HCT [Suspect]

REACTIONS (1)
  - DEATH [None]
